FAERS Safety Report 13876772 (Version 1)
Quarter: 2017Q3

REPORT INFORMATION
  Report Type: Spontaneous
  Country: US (occurrence: US)
  Receive Date: 20170817
  Receipt Date: 20170817
  Transmission Date: 20171127
  Serious: No
  Sender: FDA-Public Use
  Company Number: US-LPDUSPRD-20170223

PATIENT
  Age: 61 Year
  Sex: Female

DRUGS (1)
  1. HYDRALAZINE HCL INJECTION, USP (0901-25) [Suspect]
     Active Substance: HYDRALAZINE HYDROCHLORIDE
     Dosage: UNKNOWN
     Route: 042

REACTIONS (1)
  - Hypersensitivity [Unknown]

NARRATIVE: CASE EVENT DATE: 201511
